FAERS Safety Report 7317980-7 (Version None)
Quarter: 2011Q1

REPORT INFORMATION
  Report Type: 
  Country: None (occurrence: None)
  Receive Date: 20110227
  Receipt Date: 20110131
  Transmission Date: 20110831
  Serious: No
  Sender: FDA-Public Use
  Company Number: US-B.I. PHARMACEUTICALS,INC./RIDGEFIELD-2010-BP-15420BP

PATIENT
  Sex: Female

DRUGS (18)
  1. TOPROL-XL [Concomitant]
     Indication: HYPERTENSION
  2. PRAVASTATIN [Concomitant]
     Indication: BLOOD CHOLESTEROL INCREASED
  3. LOSARTAN POTASSIUM [Concomitant]
     Indication: HYPERTENSION
  4. VITAMIN B-12 [Concomitant]
  5. ASCORBIC ACID [Concomitant]
  6. FUROSEMIDE [Concomitant]
     Indication: CARDIAC FAILURE CONGESTIVE
  7. LEVOTHYROXINE [Concomitant]
     Indication: HYPOTHYROIDISM
  8. ALLEGRA [Concomitant]
  9. PYRIDOXINE HCL [Concomitant]
  10. SPIRONOLACTONE [Concomitant]
     Indication: CARDIAC FAILURE CONGESTIVE
  11. FOLIC ACID [Concomitant]
  12. DIGOXIN [Concomitant]
     Indication: CARDIAC DISORDER
  13. OSCAL [Concomitant]
     Indication: PROPHYLAXIS
  14. MULTIVITAMIN [Concomitant]
     Indication: PROPHYLAXIS
  15. PRADAXA [Suspect]
     Indication: ATRIAL FIBRILLATION
     Dosage: 300 MG
     Route: 048
     Dates: start: 20101208, end: 20101212
  16. PRADAXA [Suspect]
     Indication: ARRHYTHMIA
  17. CALCITRIOL [Concomitant]
     Indication: PROPHYLAXIS
  18. COZAAR [Concomitant]

REACTIONS (2)
  - DIZZINESS [None]
  - ACTIVITIES OF DAILY LIVING IMPAIRED [None]
